FAERS Safety Report 5877307-4 (Version None)
Quarter: 2008Q3

REPORT INFORMATION
  Report Type: 
  Country: None (occurrence: None)
  Receive Date: 20080908
  Receipt Date: 20080822
  Transmission Date: 20090109
  Serious: Yes (Other)
  Sender: FDA-Public Use
  Company Number: 2007S1000021

PATIENT
  Age: 34 Year
  Sex: Female

DRUGS (1)
  1. SORIATANE [Suspect]
     Indication: PSORIASIS
     Dosage: 20 MG;QD;PO;PO
     Route: 048
     Dates: end: 20070109

REACTIONS (4)
  - BLOOD TRIGLYCERIDES INCREASED [None]
  - MUSCULOSKELETAL PAIN [None]
  - PYELONEPHRITIS [None]
  - WHITE BLOOD CELL COUNT INCREASED [None]
